FAERS Safety Report 9828451 (Version 2)
Quarter: 2014Q1

REPORT INFORMATION
  Report Type: Spontaneous
  Country: US (occurrence: US)
  Receive Date: 20140117
  Receipt Date: 20140117
  Transmission Date: 20141002
  Serious: Yes (Disabling, Other)
  Sender: FDA-Public Use
  Company Number: US-GE HEALTHCARE MEDICAL DIAGNOSTICS-OSCN-PR-0902S-0071

PATIENT
  Age: 49 Year
  Sex: Female

DRUGS (4)
  1. OMNISCAN [Suspect]
     Indication: PRODUCT USED FOR UNKNOWN INDICATION
     Route: 042
     Dates: start: 20051220, end: 20051220
  2. OMNISCAN [Suspect]
     Route: 042
     Dates: start: 20051227, end: 20051227
  3. NITROGLYCERIN [Concomitant]
     Indication: VASOSPASM
     Route: 042
     Dates: start: 20051220, end: 20051220
  4. VERSED [Concomitant]
     Indication: SEDATION
     Route: 042
     Dates: start: 20051227, end: 20051227

REACTIONS (1)
  - Nephrogenic systemic fibrosis [Not Recovered/Not Resolved]
